FAERS Safety Report 22625882 (Version 18)
Quarter: 2024Q3

REPORT INFORMATION
  Report Type: Report from Study
  Country: CA (occurrence: CA)
  Receive Date: 20230621
  Receipt Date: 20240819
  Transmission Date: 20241016
  Serious: Yes (Hospitalization, Other)
  Sender: HLS THERAPEUTICS
  Company Number: CA-HLS-202301551

PATIENT
  Age: 71 Year
  Sex: Male

DRUGS (14)
  1. CLOZARIL [Suspect]
     Active Substance: CLOZAPINE
     Indication: Bipolar disorder
     Dosage: 03 APRIL 2013 TO 02 SEP 2023?300MG  AT BEDTIME ?(100 MG ORAL AT BEDTIME)
     Route: 048
  2. CLOZARIL [Suspect]
     Active Substance: CLOZAPINE
     Indication: Bipolar disorder
     Dosage: RESTARTED ON THE CLOZAPINE ON 13-FEB-2024 AND STOPPED ON 17 MAY 2024
     Route: 065
  3. VALPROIC ACID [Concomitant]
     Active Substance: VALPROIC ACID
     Indication: Product used for unknown indication
     Route: 065
  4. atropine sulfate 1 % [Concomitant]
     Indication: Salivary hypersecretion
     Dosage: 1 - 2 DRP OPHTHALMIC (EYE) EVERY 4 HOURS AS NEEDED FOR: EXCESSIVE SALIVATION
     Route: 065
  5. TYLENOL [Concomitant]
     Active Substance: ACETAMINOPHEN
     Indication: Product used for unknown indication
     Dosage: 975 MG TWICE DAILY TAKE AT 8AM AND 5PM
     Route: 065
  6. SENNA [Concomitant]
     Active Substance: SENNA LEAF\SENNOSIDES\SENNOSIDES A AND B
     Indication: Product used for unknown indication
     Dosage: 17.2 MG AT BEDTIME
     Route: 065
  7. MELATONIN [Concomitant]
     Active Substance: MELATONIN
     Indication: Product used for unknown indication
     Dosage: 6 MG SUBLINGUAL AT BEDTIME
     Route: 060
  8. LACTULOSE [Concomitant]
     Active Substance: LACTULOSE
     Indication: Product used for unknown indication
     Dosage: 60 ML EVERY MORNING
     Route: 065
  9. FUROSEMIDE [Concomitant]
     Active Substance: FUROSEMIDE
     Indication: Product used for unknown indication
     Dosage: 40 MG EVERY MORNING
     Route: 065
  10. petrolatum ointment [Concomitant]
     Indication: Product used for unknown indication
     Dosage: 1 APPLIC TOPICAL TWICE DAILY, APPLY TO SOLES OF FEET TWICE DAILY
     Route: 065
  11. SODIUM PHOSPHATES [Concomitant]
     Active Substance: SODIUM PHOSPHATE, DIBASIC, ANHYDROUS\SODIUM PHOSPHATE, MONOBASIC, MONOHYDRATE
     Indication: Constipation
     Dosage: 130 ML RECTAL EVERY 72 HOURS AS NEEDED, CAN GIVE DAILY AS NEEDED IF NO BM FOR 3 DAYS
     Route: 065
  12. IMOVANE [Concomitant]
     Active Substance: ZOPICLONE
     Indication: Insomnia
     Dosage: 7. 5 MG ORAL AT BEDTIME AS NEEDED
     Route: 065
  13. ATIVAN [Concomitant]
     Active Substance: LORAZEPAM
     Indication: Seizure
     Dosage: 2 MG ORAL AS DIRECTED AS NEEDED, MAY TAKE FOR SEIZURES. MAY REPEAT IN ONE HOUR
     Route: 065
  14. IMOVANE [Concomitant]
     Active Substance: ZOPICLONE
     Route: 065

REACTIONS (37)
  - Ammonia increased [Unknown]
  - Neutropenia [Recovered/Resolved]
  - Bacterial infection [Unknown]
  - Hypotension [Not Recovered/Not Resolved]
  - Hip fracture [Unknown]
  - Agitation [Unknown]
  - Catatonia [Unknown]
  - Cholecystitis [Unknown]
  - C-reactive protein increased [Unknown]
  - Delirium [Unknown]
  - Tooth disorder [Unknown]
  - Behaviour disorder [Unknown]
  - Hepatic enzyme increased [Unknown]
  - White blood cell count increased [Unknown]
  - Fall [Unknown]
  - Generalised tonic-clonic seizure [Unknown]
  - High density lipoprotein decreased [Unknown]
  - Hypothyroidism [Unknown]
  - Illness [Unknown]
  - General physical health deterioration [Unknown]
  - Thrombocytopenia [Unknown]
  - Parkinsonism [Unknown]
  - Mobility decreased [Unknown]
  - Electrocardiogram T wave abnormal [Unknown]
  - Platelet count decreased [Unknown]
  - Pleural effusion [Unknown]
  - Nail disorder [Unknown]
  - Condition aggravated [Unknown]
  - Hallucination [Unknown]
  - Skin infection [Unknown]
  - Somnolence [Not Recovered/Not Resolved]
  - Ulcer [Unknown]
  - Tooth infection [Unknown]
  - Troponin increased [Unknown]
  - Off label use [Unknown]
  - Urinary tract infection [Unknown]
  - Leukopenia [Recovered/Resolved]

NARRATIVE: CASE EVENT DATE: 20230601
